FAERS Safety Report 15011599 (Version 1)
Quarter: 2018Q2

REPORT INFORMATION
  Report Type: Spontaneous
  Country: BR (occurrence: BR)
  Receive Date: 20180614
  Receipt Date: 20180614
  Transmission Date: 20180711
  Serious: Yes (Hospitalization, Other)
  Sender: FDA-Public Use
  Company Number: BR-GLAXOSMITHKLINE-BR2018GSK103234

PATIENT
  Sex: Male
  Weight: 6 kg

DRUGS (3)
  1. AERODINI [Suspect]
     Active Substance: ALBUTEROL SULFATE
     Indication: BRONCHIOLITIS
     Dosage: 2 PUFF(S), Z
  2. FLIXOTIDE (CFC-FREE) [Suspect]
     Active Substance: FLUTICASONE PROPIONATE
     Indication: BRONCHIOLITIS
     Dosage: UNK, BID
     Route: 055
  3. AEROLIN [Suspect]
     Active Substance: ALBUTEROL
     Indication: BRONCHIOLITIS
     Dosage: UNK, BID
     Route: 055

REACTIONS (4)
  - Drug administered to patient of inappropriate age [Unknown]
  - Product use in unapproved indication [Unknown]
  - Hospitalisation [Unknown]
  - Product prescribing issue [Recovered/Resolved]
